FAERS Safety Report 20514790 (Version 1)
Quarter: 2022Q1

REPORT INFORMATION
  Report Type: Spontaneous
  Country: US (occurrence: US)
  Receive Date: 20220224
  Receipt Date: 20220224
  Transmission Date: 20220423
  Serious: No
  Sender: FDA-Public Use
  Company Number: US-SA-SAC20220218001216

PATIENT
  Age: 67 Year
  Sex: Female

DRUGS (20)
  1. DUPIXENT [Suspect]
     Active Substance: DUPILUMAB
     Indication: Dermatitis atopic
     Route: 058
     Dates: start: 202111, end: 202202
  2. ALBUTEROL SULFATE [Concomitant]
     Active Substance: ALBUTEROL SULFATE
  3. BIOTIN [Concomitant]
     Active Substance: BIOTIN
     Dosage: UNK
  4. CETIRIZINE [Concomitant]
     Active Substance: CETIRIZINE HYDROCHLORIDE
  5. CLONIDINE [Concomitant]
     Active Substance: CLONIDINE
     Dosage: 0.2 MG, QD
  6. COCONUT OIL [Concomitant]
     Active Substance: COCONUT OIL
  7. EPINEPHRINE [Concomitant]
     Active Substance: EPINEPHRINE
  8. FLONASE ALLERGY RELIEF [Concomitant]
     Active Substance: FLUTICASONE PROPIONATE
     Dosage: FLONASE ALLE SUS 50MCG/AC,
  9. FUROSEMIDE [Concomitant]
     Active Substance: FUROSEMIDE
  10. GABAPENTIN [Concomitant]
     Active Substance: GABAPENTIN
  11. HYDROCODONE [Concomitant]
     Active Substance: HYDROCODONE
     Dosage: TAB 10-325M
  12. HYDROXYZINE [Concomitant]
     Active Substance: HYDROXYZINE HYDROCHLORIDE
  13. LINZESS [Concomitant]
     Active Substance: LINACLOTIDE
  14. LOSARTAN POTASSIUM [Concomitant]
     Active Substance: LOSARTAN POTASSIUM
  15. MIRALAX [Concomitant]
     Active Substance: POLYETHYLENE GLYCOL 3350
  16. OXYBUTYNIN [Concomitant]
     Active Substance: OXYBUTYNIN
  17. SINGULAIR [Concomitant]
     Active Substance: MONTELUKAST SODIUM
  18. SYMBICORT [Concomitant]
     Active Substance: BUDESONIDE\FORMOTEROL FUMARATE DIHYDRATE
     Dosage: 160-4.5MCG
  19. TRELEGY ELLIPTA [Concomitant]
     Active Substance: FLUTICASONE FUROATE\UMECLIDINIUM BROMIDE\VILANTEROL TRIFENATATE
     Dosage: TRELEGY ELLI AEP 200-62.5,
  20. ZANAFLEX [Concomitant]
     Active Substance: TIZANIDINE HYDROCHLORIDE

REACTIONS (1)
  - Pruritus [Not Recovered/Not Resolved]
